FAERS Safety Report 8099468-1 (Version None)
Quarter: 2012Q1

REPORT INFORMATION
  Report Type: 
  Country: None (occurrence: None)
  Receive Date: 20120129
  Receipt Date: 20111003
  Transmission Date: 20120608
  Serious: No
  Sender: FDA-Public Use
  Company Number: US-ABBOTT-11P-163-0861851-00

PATIENT
  Sex: Male
  Weight: 66.284 kg

DRUGS (3)
  1. CONCERTA [Concomitant]
     Indication: ATTENTION DEFICIT/HYPERACTIVITY DISORDER
     Dosage: 1 - 2 TABLETS DAILY
  2. HUMIRA [Suspect]
     Route: 058
     Dates: start: 20110901
  3. HUMIRA [Suspect]
     Indication: CROHN'S DISEASE
     Route: 058
     Dates: start: 20110701, end: 20110901

REACTIONS (8)
  - INJECTION SITE HAEMORRHAGE [None]
  - MUSCULOSKELETAL PAIN [None]
  - JOINT DISLOCATION [None]
  - DIARRHOEA [None]
  - ACCIDENT [None]
  - INJECTION SITE PAIN [None]
  - INCREASED TENDENCY TO BRUISE [None]
  - ABDOMINAL PAIN [None]
